FAERS Safety Report 9322630 (Version 2)
Quarter: 2013Q4

REPORT INFORMATION
  Report Type: Spontaneous
  Country: US (occurrence: US)
  Receive Date: 20130531
  Receipt Date: 20131226
  Transmission Date: 20140711
  Serious: Yes (Hospitalization)
  Sender: FDA-Public Use
  Company Number: US-B.I. PHARMACEUTICALS,INC./RIDGEFIELD-2013-BI-14704BP

PATIENT
  Age: 64 Year
  Sex: Male
  Weight: 86.18 kg

DRUGS (10)
  1. PRADAXA [Suspect]
     Indication: ATRIAL FIBRILLATION
     Dosage: 300 MG
     Route: 048
     Dates: start: 20110222, end: 20110531
  2. PLAVIX [Concomitant]
     Dosage: 75 MG
     Dates: end: 20110531
  3. ASCORBIC ACID [Concomitant]
     Dosage: 500 MG
  4. TYLENOL [Concomitant]
     Indication: PAIN
     Route: 048
  5. LUTEIN [Concomitant]
     Dosage: 6 MG
  6. MULTIVITAMIN [Concomitant]
  7. OMEPRAZOLE [Concomitant]
     Dosage: 40 MG
  8. SOTALOL [Concomitant]
     Indication: ATRIAL FIBRILLATION
     Dosage: 160 MG
  9. COENZYME Q10 [Concomitant]
     Route: 048
  10. VITAMIN E [Concomitant]

REACTIONS (2)
  - Cerebrovascular accident [Not Recovered/Not Resolved]
  - Gastrointestinal haemorrhage [Unknown]
